FAERS Safety Report 9380991 (Version 1)
Quarter: 2013Q3

REPORT INFORMATION
  Report Type: Spontaneous
  Country: US (occurrence: US)
  Receive Date: 20130703
  Receipt Date: 20130703
  Transmission Date: 20140515
  Serious: Yes (Hospitalization)
  Sender: FDA-Public Use
  Company Number: US-BRISTOL-MYERS SQUIBB COMPANY-19044171

PATIENT
  Sex: Female

DRUGS (4)
  1. BYDUREON [Suspect]
  2. METFORMIN [Concomitant]
  3. JANUVIA [Concomitant]
  4. GLIPIZIDE [Concomitant]

REACTIONS (1)
  - Pancreatitis [Unknown]
